FAERS Safety Report 6187797-8 (Version None)
Quarter: 2009Q2

REPORT INFORMATION
  Report Type: 
  Country: None (occurrence: None)
  Receive Date: 20090513
  Receipt Date: 20090504
  Transmission Date: 20091009
  Serious: Yes (Other)
  Sender: FDA-Public Use
  Company Number: CH-TEVA-193913ISR

PATIENT
  Age: 56 Year
  Sex: Female

DRUGS (3)
  1. CISPLATIN [Suspect]
     Indication: OESOPHAGEAL CARCINOMA
     Route: 041
     Dates: start: 20090302, end: 20090307
  2. FLUOROURACIL [Suspect]
     Indication: OESOPHAGEAL CARCINOMA
     Route: 041
     Dates: start: 20090302, end: 20090307
  3. METOCLOPRAMIDE [Suspect]
     Route: 048
     Dates: start: 20090101, end: 20090314

REACTIONS (1)
  - DYSKINESIA [None]
